FAERS Safety Report 6418424-X (Version None)
Quarter: 2009Q4

REPORT INFORMATION
  Report Type: 
  Country: None (occurrence: None)
  Receive Date: 20091026
  Receipt Date: 20091013
  Transmission Date: 20100525
  Serious: Yes (Other)
  Sender: FDA-Public Use
  Company Number: ADR37452009

PATIENT
  Age: 71 Year
  Sex: Female

DRUGS (2)
  1. SIMVASTATIN [Suspect]
     Indication: HYPERLIPIDAEMIA
     Dosage: 1 DF DAILY, ORAL USE
     Route: 048
     Dates: start: 20070905, end: 20071101
  2. INFLUENZA VIRUS [Concomitant]

REACTIONS (4)
  - ANHEDONIA [None]
  - DEPRESSED MOOD [None]
  - DEPRESSION [None]
  - SLEEP DISORDER [None]
